FAERS Safety Report 7518463-1 (Version None)
Quarter: 2011Q2

REPORT INFORMATION
  Report Type: 
  Country: None (occurrence: None)
  Receive Date: 20110602
  Receipt Date: 20110518
  Transmission Date: 20111010
  Serious: Yes (Other)
  Sender: FDA-Public Use
  Company Number: DK-JNJFOC-20110508507

PATIENT

DRUGS (3)
  1. ETANERCEPT [Suspect]
     Indication: ILL-DEFINED DISORDER
  2. ADALIMUMAB [Suspect]
     Indication: ILL-DEFINED DISORDER
  3. INFLIXIMAB, RECOMBINANT [Suspect]
     Indication: PRODUCT USED FOR UNKNOWN INDICATION
     Route: 042

REACTIONS (1)
  - MYCOBACTERIAL INFECTION [None]
